FAERS Safety Report 23771467 (Version 1)
Quarter: 2024Q2

REPORT INFORMATION
  Report Type: Report from Study
  Country: US (occurrence: US)
  Receive Date: 20240423
  Receipt Date: 20240423
  Transmission Date: 20240716
  Serious: Yes (Other)
  Sender: FDA-Public Use
  Company Number: US-GILEAD-2024-0670167

PATIENT
  Sex: Female

DRUGS (29)
  1. AZTREONAM LYSINE [Suspect]
     Active Substance: AZTREONAM LYSINE
     Indication: Cystic fibrosis lung
     Dosage: 75 MG, TID  (28 DAYS ON, 28 DAYS OFF)
     Route: 055
  2. BOTOX [Concomitant]
     Active Substance: ONABOTULINUMTOXINA
  3. HUMALOG [Concomitant]
     Active Substance: INSULIN LISPRO
  4. ELIQUIS [Concomitant]
     Active Substance: APIXABAN
  5. KLONOPIN [Concomitant]
     Active Substance: CLONAZEPAM
  6. CELLCEPT [Concomitant]
     Active Substance: MYCOPHENOLATE MOFETIL
  7. ACTIGALL [Concomitant]
     Active Substance: URSODIOL
  8. PREDNISONE [Concomitant]
     Active Substance: PREDNISONE
  9. LYRICA [Concomitant]
     Active Substance: PREGABALIN
  10. FLOVENT [Concomitant]
     Active Substance: FLUTICASONE PROPIONATE
  11. LEVOTHYROXINE SODIUM [Concomitant]
     Active Substance: LEVOTHYROXINE SODIUM
  12. ACYCLOVIR [Concomitant]
     Active Substance: ACYCLOVIR
  13. CYCLOBENZAPRINE [Concomitant]
     Active Substance: CYCLOBENZAPRINE
  14. VITAMIN E [Concomitant]
     Active Substance: .ALPHA.-TOCOPHEROL
  15. OMEPRAZOLE [Concomitant]
     Active Substance: OMEPRAZOLE
  16. MAGNESIUM [Concomitant]
     Active Substance: MAGNESIUM
  17. FAMOTIDINE [Concomitant]
     Active Substance: FAMOTIDINE
  18. PROBIOTIC 10 [BIFIDOBACTERIUM BIFIDUM;BIFIDOBACTERIUM LACTIS;LACTIPLAN [Concomitant]
  19. CHOLECALCIFEROL [Concomitant]
     Active Substance: CHOLECALCIFEROL
  20. ATENOLOL [Concomitant]
     Active Substance: ATENOLOL
  21. SERTRALINE [Concomitant]
     Active Substance: SERTRALINE HYDROCHLORIDE
  22. CALCIUM ASCORBATE [Concomitant]
     Active Substance: CALCIUM ASCORBATE
  23. ZENPEP [Concomitant]
     Active Substance: PANCRELIPASE AMYLASE\PANCRELIPASE LIPASE\PANCRELIPASE PROTEASE
  24. ATIVAN [Concomitant]
     Active Substance: LORAZEPAM
  25. PROGRAF [Concomitant]
     Active Substance: TACROLIMUS
  26. MIRALAX [Concomitant]
     Active Substance: POLYETHYLENE GLYCOL 3350
  27. CALCIUM\VITAMIN D [Concomitant]
     Active Substance: CALCIUM\VITAMIN D
  28. BACTRIM [Concomitant]
     Active Substance: SULFAMETHOXAZOLE\TRIMETHOPRIM
  29. GOLYTELY [Concomitant]
     Active Substance: POLYETHYLENE GLYCOL 3350\POTASSIUM CHLORIDE\SODIUM BICARBONATE\SODIUM CHLORIDE\SODIUM SULFATE

REACTIONS (1)
  - Pneumonia [Not Recovered/Not Resolved]
